FAERS Safety Report 6224448-8 (Version None)
Quarter: 2009Q2

REPORT INFORMATION
  Report Type: 
  Country: None (occurrence: None)
  Receive Date: 20090612
  Receipt Date: 20090319
  Transmission Date: 20091009
  Serious: No
  Sender: FDA-Public Use
  Company Number: US-ABBOTT-09P-163-0563536-00

PATIENT
  Sex: Female
  Weight: 63.56 kg

DRUGS (9)
  1. HUMIRA [Suspect]
     Indication: PSORIASIS
     Dosage: ONE INJECTION IN RIGHT THIGH
     Route: 058
     Dates: start: 20090205, end: 20090205
  2. CORTISONE [Concomitant]
     Indication: PSORIASIS
     Route: 061
  3. PREMARIN [Concomitant]
     Indication: MENOPAUSE
     Dosage: .9
     Route: 048
  4. SYNTHROID [Concomitant]
     Indication: HYPOTHYROIDISM
     Route: 048
  5. BETAXOLOL [Concomitant]
     Indication: HYPERTENSION
     Dosage: NOT REPORTED
  6. NORFLEX [Concomitant]
     Indication: MIGRAINE
     Dosage: NOT REPORTED
  7. CELEBREX [Concomitant]
     Indication: MIGRAINE
     Dosage: NOT REPORTED
  8. MULTI-VITAMIN [Concomitant]
     Indication: VITAMIN SUPPLEMENTATION
     Dosage: NOT REPORTED
  9. CALCIUM [Concomitant]
     Indication: MINERAL SUPPLEMENTATION
     Dosage: NOT REPORTED

REACTIONS (6)
  - DISSOCIATION [None]
  - FEELING ABNORMAL [None]
  - HYPOAESTHESIA [None]
  - MUSCLE SPASMS [None]
  - MUSCLE TWITCHING [None]
  - MUSCULAR WEAKNESS [None]
